FAERS Safety Report 6267401-0 (Version None)
Quarter: 2009Q3

REPORT INFORMATION
  Report Type: 
  Country: None (occurrence: None)
  Receive Date: 20090714
  Receipt Date: 20090703
  Transmission Date: 20100115
  Serious: Yes (Other)
  Sender: FDA-Public Use
  Company Number: CA-BAYER-200924869NA

PATIENT
  Age: 48 Year
  Sex: Male
  Weight: 98 kg

DRUGS (5)
  1. BETASERON [Suspect]
     Indication: RELAPSING-REMITTING MULTIPLE SCLEROSIS
     Dosage: TOTAL DAILY DOSE: 4 MIU
     Route: 058
     Dates: start: 20090601
  2. BETASERON [Suspect]
     Dosage: TOTAL DAILY DOSE: 6 MIU
     Route: 058
     Dates: end: 20090629
  3. FLOMAX [Concomitant]
     Indication: URINARY INCONTINENCE
     Route: 048
  4. DUVOID [Concomitant]
     Indication: URINARY INCONTINENCE
     Route: 048
  5. LYRICA [Concomitant]

REACTIONS (5)
  - MULTIPLE SCLEROSIS [None]
  - MUSCLE FATIGUE [None]
  - NOCTURIA [None]
  - PAIN IN EXTREMITY [None]
  - PSORIASIS [None]
